FAERS Safety Report 15770372 (Version 1)
Quarter: 2018Q4

REPORT INFORMATION
  Report Type: Spontaneous
  Country: JP (occurrence: JP)
  Receive Date: 20181228
  Receipt Date: 20181228
  Transmission Date: 20190205
  Serious: Yes (Hospitalization)
  Sender: FDA-Public Use
  Company Number: JP-REGENERON PHARMACEUTICALS, INC.-2018-49740

PATIENT

DRUGS (5)
  1. EYLEA [Suspect]
     Active Substance: AFLIBERCEPT
     Indication: DIABETIC RETINAL OEDEMA
     Dosage: 0.1 ML, ONCE, BOTH EYES
     Route: 031
  2. EYLEA [Suspect]
     Active Substance: AFLIBERCEPT
     Dosage: 0.1 ML, ONCE, BOTH EYES
     Route: 031
     Dates: start: 201810, end: 201810
  3. EYLEA [Suspect]
     Active Substance: AFLIBERCEPT
     Dosage: 0.1 ML, ONCE, BOTH EYES
     Route: 031
  4. EYLEA [Suspect]
     Active Substance: AFLIBERCEPT
     Dosage: 0.1 ML, ONCE, BOTH EYES
     Route: 031
  5. VONOPION [Suspect]
     Active Substance: AMOXICILLIN\METRONIDAZOLE\VONOPRAZAN
     Indication: HELICOBACTER INFECTION
     Route: 048

REACTIONS (1)
  - Immune thrombocytopenic purpura [Not Recovered/Not Resolved]

NARRATIVE: CASE EVENT DATE: 20181219
